FAERS Safety Report 26119019 (Version 1)
Quarter: 2025Q4

REPORT INFORMATION
  Report Type: Spontaneous
  Country: GB (occurrence: GB)
  Receive Date: 20251204
  Receipt Date: 20251204
  Transmission Date: 20260118
  Serious: Yes (Other)
  Sender: ALEXION PHARMACEUTICALS
  Company Number: None

PATIENT
  Age: 31 Year
  Sex: Female

DRUGS (2)
  1. TEZSPIRE [Suspect]
     Active Substance: TEZEPELUMAB-EKKO
     Dosage: UNK
     Route: 065
  2. TEZSPIRE [Suspect]
     Active Substance: TEZEPELUMAB-EKKO

REACTIONS (4)
  - Foetal exposure during pregnancy [Unknown]
  - Eyelid haemangioma [Not Recovered/Not Resolved]
  - Oral haemangioma [Not Recovered/Not Resolved]
  - Infantile haemangioma [Not Recovered/Not Resolved]

NARRATIVE: CASE EVENT DATE: 20250901
